FAERS Safety Report 13840891 (Version 8)
Quarter: 2017Q4

REPORT INFORMATION
  Report Type: Report from Study
  Country: CA (occurrence: CA)
  Receive Date: 20170807
  Receipt Date: 20171205
  Transmission Date: 20180320
  Serious: Yes (Hospitalization, Other)
  Sender: FDA-Public Use
  Company Number: CA-TAKEDA-2017TUS014786

PATIENT
  Age: 70 Year
  Sex: Male

DRUGS (10)
  1. PANTOPRAZOLE [Concomitant]
     Active Substance: PANTOPRAZOLE
     Dosage: 40 MG, QD
     Route: 048
  2. MEZAVANT [Concomitant]
     Active Substance: MESALAMINE
     Dosage: UNK UNK, QD
     Route: 048
     Dates: start: 201404
  3. TYLENOL [Concomitant]
     Active Substance: ACETAMINOPHEN
     Dosage: UNK
  4. VEDOLIZUMAB [Suspect]
     Active Substance: VEDOLIZUMAB
     Indication: COLITIS ULCERATIVE
     Dosage: 300 MG, UNK
     Route: 042
     Dates: start: 20170615
  5. PMS-AMLODIPINE                     /00972401/ [Concomitant]
     Dosage: UNK UNK, QD
     Route: 048
  6. PMS-METOPROLOL [Concomitant]
     Dosage: 25 MG, UNK
  7. WARFARIN [Concomitant]
     Active Substance: WARFARIN
     Dosage: UNK
  8. NOVO-CEFADROXIL [Concomitant]
     Indication: POST PROCEDURAL INFECTION
     Dosage: 500 MG, QD
     Route: 048
     Dates: start: 2014
  9. JAMP ASA [Concomitant]
     Dosage: 80 MG, QD
  10. PMS-METOPROLOL [Concomitant]
     Dosage: 2.5 MG, UNK

REACTIONS (13)
  - Colitis ulcerative [Recovered/Resolved]
  - Malaise [Recovered/Resolved]
  - Blood pressure increased [Unknown]
  - Musculoskeletal chest pain [Not Recovered/Not Resolved]
  - Contusion [Unknown]
  - Abdominal pain [Recovered/Resolved]
  - Myalgia [Unknown]
  - Cholelithiasis [Recovered/Resolved]
  - Poor venous access [Unknown]
  - Dyspnoea [Not Recovered/Not Resolved]
  - Dizziness [Not Recovered/Not Resolved]
  - Intestinal prolapse [Unknown]
  - Drug ineffective [Unknown]

NARRATIVE: CASE EVENT DATE: 201707
